FAERS Safety Report 6256396-1 (Version None)
Quarter: 2009Q3

REPORT INFORMATION
  Report Type: 
  Country: None (occurrence: None)
  Receive Date: 20090701
  Receipt Date: 20090701
  Transmission Date: 20100115
  Serious: Yes (Life-Threatening)
  Sender: FDA-Public Use
  Company Number: None

PATIENT
  Age: 50 Year
  Sex: Female

DRUGS (1)
  1. AVIANE-21 [Suspect]
     Indication: ENDOMETRIOSIS
     Dosage: 1 PILL DAILY 3 WEEKS ON, 1 OFF PO
     Route: 048
     Dates: start: 20080601, end: 20090520

REACTIONS (3)
  - HYPERTENSION [None]
  - VENTRICULAR EXTRASYSTOLES [None]
  - VENTRICULAR TACHYCARDIA [None]
